FAERS Safety Report 5553876-9 (Version None)
Quarter: 2007Q4

REPORT INFORMATION
  Report Type: 
  Country: None (occurrence: None)
  Receive Date: 20071213
  Receipt Date: 20071207
  Transmission Date: 20080405
  Serious: Yes (Death)
  Sender: FDA-Public Use
  Company Number: PH-BAXTER-2007BH009323

PATIENT
  Sex: Male

DRUGS (1)
  1. DIANEAL [Suspect]
     Indication: RENAL FAILURE ACUTE
     Dosage: DOSE UNIT:UNKNOWN
     Route: 033
     Dates: start: 20071028, end: 20071030

REACTIONS (2)
  - NECROTISING FASCIITIS [None]
  - SEPTIC SHOCK [None]
